FAERS Safety Report 23636912 (Version 4)
Quarter: 2024Q2

REPORT INFORMATION
  Report Type: Spontaneous
  Country: JP (occurrence: None)
  Receive Date: 20240315
  Receipt Date: 20240419
  Transmission Date: 20240715
  Serious: Yes (Other)
  Sender: FDA-Public Use
  Company Number: 2024A061423

PATIENT
  Age: 75 Year
  Sex: Female

DRUGS (10)
  1. LOKELMA [Suspect]
     Active Substance: SODIUM ZIRCONIUM CYCLOSILICATE
     Dosage: ON NON-DIALYSIS DAY, AFTER BREAKFAST
     Route: 048
     Dates: start: 2024
  2. NIFEDIPINE [Concomitant]
     Active Substance: NIFEDIPINE
     Dosage: DOSE UNKNOWN
     Route: 048
  3. MAGNESIUM OXIDE [Concomitant]
     Active Substance: MAGNESIUM OXIDE
     Dosage: DOSE UNKNOWN
     Route: 048
  4. CARVEDILOL [Concomitant]
     Active Substance: CARVEDILOL
     Dosage: DOSE UNKNOWN
     Route: 048
  5. IRBESARTAN [Concomitant]
     Active Substance: IRBESARTAN
     Dosage: DOSE UNKNOWN
     Route: 048
  6. LANTHANUM CARBONATE [Concomitant]
     Active Substance: LANTHANUM CARBONATE
     Dosage: DOSE UNKNOWN
     Route: 048
  7. AMLODIPINE [Concomitant]
     Active Substance: AMLODIPINE BESYLATE
     Dosage: DOSE UNKNOWN
     Route: 048
  8. AZELNIDIPINE [Concomitant]
     Active Substance: AZELNIDIPINE
     Dosage: DOSE UNKNOWN
     Route: 048
  9. REBAMIPIDE [Concomitant]
     Active Substance: REBAMIPIDE
     Dosage: DOSE UNKNOWN
     Route: 048
  10. LIDOCAINE [Concomitant]
     Active Substance: LIDOCAINE
     Dosage: DOSE UNKNOWN
     Route: 062

REACTIONS (3)
  - Muscle fatigue [Recovered/Resolved]
  - Tongue movement disturbance [Recovered/Resolved]
  - Abdominal discomfort [Recovered/Resolved]

NARRATIVE: CASE EVENT DATE: 20240308
